FAERS Safety Report 11769744 (Version 3)
Quarter: 2015Q4

REPORT INFORMATION
  Report Type: Spontaneous
  Country: US (occurrence: US)
  Receive Date: 20151123
  Receipt Date: 20151208
  Transmission Date: 20160304
  Serious: No
  Sender: FDA-Public Use
  Company Number: US-WATSON-2015-24295

PATIENT
  Sex: Male

DRUGS (2)
  1. CLONIDINE HYDROCHLORIDE (AELLC) [Suspect]
     Active Substance: CLONIDINE HYDROCHLORIDE
     Dosage: 0.3 MG THREE TIMES DAILY
     Route: 048
  2. CLONIDINE. [Suspect]
     Active Substance: CLONIDINE
     Indication: PRODUCT USED FOR UNKNOWN INDICATION
     Dosage: 0.3 MG, UNKNOWN
     Route: 062
     Dates: start: 2015

REACTIONS (3)
  - Headache [Unknown]
  - Blood pressure increased [Unknown]
  - Heart rate decreased [Unknown]
